FAERS Safety Report 4868490-8 (Version None)
Quarter: 2005Q4

REPORT INFORMATION
  Report Type: 
  Country: None (occurrence: None)
  Receive Date: 20051223
  Receipt Date: 20051214
  Transmission Date: 20060501
  Serious: Yes (Hospitalization)
  Sender: FDA-Public Use
  Company Number: 2005170304

PATIENT
  Sex: Male

DRUGS (1)
  1. VIAGRA [Suspect]

REACTIONS (3)
  - CARDIAC FAILURE CONGESTIVE [None]
  - HYPERTENSION [None]
  - MYOCARDIAL INFARCTION [None]
